FAERS Safety Report 6566825-1 (Version None)
Quarter: 2010Q1

REPORT INFORMATION
  Report Type: 
  Country: None (occurrence: None)
  Receive Date: 20100202
  Receipt Date: 20100127
  Transmission Date: 20100710
  Serious: Yes (Death)
  Sender: FDA-Public Use
  Company Number: A0841697A

PATIENT
  Age: 80 Year
  Sex: Male

DRUGS (2)
  1. ALKERAN [Suspect]
     Dosage: 2MG UNKNOWN
     Route: 048
     Dates: start: 20080308
  2. UNKNOWN MEDICATION [Concomitant]

REACTIONS (1)
  - MULTIPLE MYELOMA [None]
